FAERS Safety Report 24309954 (Version 2)
Quarter: 2024Q3

REPORT INFORMATION
  Report Type: Spontaneous
  Country: US (occurrence: US)
  Receive Date: 20240912
  Receipt Date: 20240921
  Transmission Date: 20241017
  Serious: No
  Sender: HETERO
  Company Number: US-HETERO-HET2024US02905

PATIENT
  Age: 83 Year
  Sex: Male
  Weight: 73.48 kg

DRUGS (2)
  1. HIGH DENSITY POLYETHYLENE [Suspect]
     Active Substance: HIGH DENSITY POLYETHYLENE
     Indication: Constipation
     Dosage: 17 GRAM, ONCE A DAY
     Route: 048
     Dates: start: 20240828, end: 20240828
  2. KONSYL [PSYLLIUM HYDROPHILIC MUCILLOID] [Concomitant]
     Indication: Product used for unknown indication
     Dosage: UNK
     Route: 065

REACTIONS (1)
  - Drug ineffective [Unknown]

NARRATIVE: CASE EVENT DATE: 20240828
